FAERS Safety Report 10157770 (Version 1)
Quarter: 2014Q2

REPORT INFORMATION
  Report Type: Spontaneous
  Country: US (occurrence: US)
  Receive Date: 20140507
  Receipt Date: 20140507
  Transmission Date: 20141212
  Serious: No
  Sender: FDA-Public Use
  Company Number: US-TEVA-480344USA

PATIENT
  Sex: Female

DRUGS (2)
  1. PLAN B ONE-STEP [Suspect]
     Indication: POST COITAL CONTRACEPTION
     Dosage: 1.5 MILLIGRAM DAILY;
     Route: 048
     Dates: start: 20140414, end: 20140414
  2. BIRTH CONTROL PILL [Concomitant]
     Indication: CONTRACEPTION

REACTIONS (2)
  - Muscle spasms [Unknown]
  - Metrorrhagia [Unknown]
